FAERS Safety Report 15608378 (Version 1)
Quarter: 2018Q4

REPORT INFORMATION
  Report Type: Spontaneous
  Country: US (occurrence: US)
  Receive Date: 20181112
  Receipt Date: 20181112
  Transmission Date: 20190205
  Serious: No
  Sender: FDA-Public Use
  Company Number: US-PFIZER INC-2018463416

PATIENT
  Age: 56 Year
  Sex: Male

DRUGS (2)
  1. METHOTREXATE SODIUM. [Suspect]
     Active Substance: METHOTREXATE SODIUM
     Dosage: 0.8 ML, WEEKLY
     Route: 058
  2. FOLATE [Concomitant]
     Active Substance: FOLATE SODIUM
     Dosage: UNK, DAILY

REACTIONS (7)
  - Rash generalised [Not Recovered/Not Resolved]
  - Peripheral swelling [Unknown]
  - Onycholysis [Unknown]
  - Enthesopathy [Unknown]
  - Musculoskeletal stiffness [Not Recovered/Not Resolved]
  - Synovitis [Unknown]
  - Joint stiffness [Not Recovered/Not Resolved]
